FAERS Safety Report 14412813 (Version 1)
Quarter: 2018Q1

REPORT INFORMATION
  Report Type: Report from Study
  Country: US (occurrence: US)
  Receive Date: 20180119
  Receipt Date: 20180119
  Transmission Date: 20180509
  Serious: Yes (Other)
  Sender: FDA-Public Use
  Company Number: US-PFIZER INC-2018020089

PATIENT
  Sex: Female

DRUGS (3)
  1. XALKORI [Suspect]
     Active Substance: CRIZOTINIB
     Dosage: 250 MG, TWICE DAILY
     Dates: start: 20131227
  2. XALKORI [Suspect]
     Active Substance: CRIZOTINIB
     Dosage: AT 50% DOSE REDUCTION
     Dates: start: 20140205
  3. COUMADIN [Suspect]
     Active Substance: WARFARIN SODIUM
     Dosage: UNK

REACTIONS (4)
  - Pneumonia [Unknown]
  - International normalised ratio fluctuation [Unknown]
  - Pneumonitis [Unknown]
  - Pneumonia [Unknown]

NARRATIVE: CASE EVENT DATE: 20140122
